FAERS Safety Report 5487652-2 (Version None)
Quarter: 2007Q4

REPORT INFORMATION
  Report Type: 
  Country: None (occurrence: None)
  Receive Date: 20071015
  Receipt Date: 20071015
  Transmission Date: 20080405
  Serious: Yes (Other)
  Sender: FDA-Public Use
  Company Number: None

PATIENT
  Sex: Female
  Weight: 65.7716 kg

DRUGS (1)
  1. WELLBUTRIN SR [Suspect]
     Indication: DEPRESSION

REACTIONS (9)
  - BUNDLE BRANCH BLOCK [None]
  - CARDIAC DISORDER [None]
  - DRUG INEFFECTIVE [None]
  - GASTRIC CANCER [None]
  - GASTRIC PH DECREASED [None]
  - OESOPHAGEAL CARCINOMA [None]
  - PHARMACEUTICAL PRODUCT COMPLAINT [None]
  - THERAPEUTIC RESPONSE UNEXPECTED WITH DRUG SUBSTITUTION [None]
  - WEIGHT DECREASED [None]
